FAERS Safety Report 11071826 (Version 1)
Quarter: 2015Q2

REPORT INFORMATION
  Report Type: Spontaneous
  Country: JP (occurrence: None)
  Receive Date: 20150424
  Receipt Date: 20150424
  Transmission Date: 20150821
  Serious: Yes (Other)
  Sender: FDA-Public Use
  Company Number: 2015HINLIT0340

PATIENT
  Age: 72 Year
  Sex: Female

DRUGS (2)
  1. SILDENAFIL (SILDENAFIL) UNKNOWN [Suspect]
     Active Substance: SILDENAFIL
     Indication: PULMONARY ARTERIAL HYPERTENSION
  2. BOSENTAN (BOSENTAN) UNKNOWN [Concomitant]
     Active Substance: BOSENTAN ANHYDROUS

REACTIONS (8)
  - Pulmonary arterial hypertension [None]
  - Anaemia [None]
  - Systemic sclerosis [None]
  - Gastrointestinal telangiectasia [None]
  - Dyspnoea [None]
  - Surgical failure [None]
  - Condition aggravated [None]
  - Gastrointestinal haemorrhage [None]
